FAERS Safety Report 6075489-5 (Version None)
Quarter: 2009Q1

REPORT INFORMATION
  Report Type: 
  Country: None (occurrence: None)
  Receive Date: 20090212
  Receipt Date: 20090209
  Transmission Date: 20090719
  Serious: Yes (Death, Hospitalization)
  Sender: FDA-Public Use
  Company Number: B0558356A

PATIENT
  Age: 53 Year
  Sex: Female
  Weight: 68 kg

DRUGS (2)
  1. LAPATINIB [Suspect]
     Dosage: 1250MG PER DAY
     Route: 048
     Dates: start: 20090114, end: 20090126
  2. CAPECITABINE [Suspect]
     Dosage: 3450MG PER DAY
     Dates: start: 20090114, end: 20090126

REACTIONS (1)
  - BONE MARROW FAILURE [None]
